FAERS Safety Report 7940430-4 (Version None)
Quarter: 2011Q4

REPORT INFORMATION
  Report Type: 
  Country: None (occurrence: None)
  Receive Date: 20111128
  Receipt Date: 20111118
  Transmission Date: 20120403
  Serious: Yes (Hospitalization, Other)
  Sender: FDA-Public Use
  Company Number: JP-AMGEN-JPNSP2011056232

PATIENT
  Age: 53 Year
  Sex: Male

DRUGS (4)
  1. LOXONIN [Concomitant]
     Indication: RHEUMATOID ARTHRITIS
     Dosage: 60 MG, 3X/DAY
     Route: 048
     Dates: start: 20080307, end: 20111018
  2. ENBREL [Suspect]
     Indication: RHEUMATOID ARTHRITIS
     Dosage: 25 MG, WEEKLY
     Route: 058
     Dates: start: 20111013, end: 20111018
  3. MUCOSTA [Concomitant]
     Indication: PROPHYLAXIS
     Dosage: 100 MG, 3X/DAY
     Route: 048
     Dates: start: 20080307, end: 20111018
  4. PREDNISOLONE [Concomitant]
     Indication: RHEUMATOID ARTHRITIS
     Dosage: 2.5 MG, 2X/DAY
     Route: 048
     Dates: start: 20080307, end: 20111018

REACTIONS (1)
  - RASH GENERALISED [None]
